FAERS Safety Report 24670152 (Version 2)
Quarter: 2024Q4

REPORT INFORMATION
  Report Type: Spontaneous
  Country: IR (occurrence: IR)
  Receive Date: 20241127
  Receipt Date: 20241211
  Transmission Date: 20250115
  Serious: Yes (Hospitalization, Other)
  Sender: ASTELLAS
  Company Number: IR-ASTELLAS-2024-AER-020561

PATIENT
  Age: 17 Year
  Sex: Male

DRUGS (5)
  1. PROGRAF [Suspect]
     Active Substance: TACROLIMUS
     Indication: Allogenic stem cell transplantation
     Dosage: TAPERED UP TO THE THERAPEUTIC LEVELS. PROGRAF INJECTION, SOLUTION, CONCENTRATE PARENTERAL 5 MG/1ML.
     Route: 042
     Dates: start: 20230205, end: 20230205
  2. CYCLOSPORINE [Concomitant]
     Active Substance: CYCLOSPORINE
     Indication: Allogenic stem cell transplantation
     Dosage: 6-H
     Route: 042
     Dates: start: 2023, end: 202301
  3. HYDROCORTISONE [Concomitant]
     Active Substance: HYDROCORTISONE
     Indication: Pruritus
     Route: 042
     Dates: start: 2023
  4. DIPHENHYDRAMINE [Concomitant]
     Active Substance: DIPHENHYDRAMINE
     Indication: Pruritus
     Route: 065
     Dates: start: 2023
  5. CHLORPHENIRAMINE [Concomitant]
     Active Substance: CHLORPHENIRAMINE
     Indication: Pruritus
     Route: 065
     Dates: start: 2023

REACTIONS (3)
  - Drug intolerance [Unknown]
  - Anaphylactic reaction [Recovered/Resolved]
  - Off label use [Unknown]

NARRATIVE: CASE EVENT DATE: 20230101
